FAERS Safety Report 8665141 (Version 2)
Quarter: 2013Q4

REPORT INFORMATION
  Report Type: Spontaneous
  Country: US (occurrence: US)
  Receive Date: 20120716
  Receipt Date: 20131101
  Transmission Date: 20140711
  Serious: No
  Sender: FDA-Public Use
  Company Number: US-009507513-1207USA003781

PATIENT
  Age: 53 Year
  Sex: Female

DRUGS (3)
  1. JANUMET [Suspect]
     Indication: TYPE 2 DIABETES MELLITUS
     Dosage: 1000MG/50 MG
     Route: 048
     Dates: start: 201206, end: 20120702
  2. PAXIL [Concomitant]
  3. ESTRACE [Concomitant]

REACTIONS (2)
  - Pain in extremity [Recovering/Resolving]
  - Arthralgia [Recovering/Resolving]
